FAERS Safety Report 5615532-8 (Version None)
Quarter: 2008Q1

REPORT INFORMATION
  Report Type: 
  Country: None (occurrence: None)
  Receive Date: 20080206
  Receipt Date: 20080201
  Transmission Date: 20080703
  Serious: Yes (Death, Other)
  Sender: FDA-Public Use
  Company Number: DE-BRISTOL-MYERS SQUIBB COMPANY-14063291

PATIENT

DRUGS (8)
  1. CISPLATIN [Suspect]
     Indication: GASTRIC CANCER
     Route: 042
  2. PACLITAXEL [Suspect]
     Indication: GASTRIC CANCER
     Dosage: 3 HOUR INFUSION.
     Route: 042
  3. FOLINIC ACID [Suspect]
     Indication: GASTRIC CANCER
     Dosage: 2 HOUR INFUSION.
     Route: 042
  4. FLUOROURACIL [Suspect]
     Indication: GASTRIC CANCER
     Dosage: 24 HOUR INFUSION.
     Route: 042
  5. RADIOTHERAPY [Suspect]
     Indication: GASTRIC CANCER
     Dosage: 45 GY AT 1.8 GY/DAY,5DAYS/WEEK,FLUROURACIL 225MG/M2 ON ALL RADIATION DAYS.
  6. DEXAMETHASONE TAB [Concomitant]
     Indication: PROPHYLAXIS
  7. RANITIDINE [Concomitant]
     Indication: PROPHYLAXIS
  8. DIPHENHYDRAMINE HCL [Concomitant]
     Indication: PROPHYLAXIS

REACTIONS (2)
  - NEUTROPENIA [None]
  - PNEUMOCYSTIS JIROVECI PNEUMONIA [None]
